FAERS Safety Report 7751948-1 (Version None)
Quarter: 2011Q3

REPORT INFORMATION
  Report Type: 
  Country: None (occurrence: None)
  Receive Date: 20110915
  Receipt Date: 20110912
  Transmission Date: 20111222
  Serious: Yes (Other)
  Sender: FDA-Public Use
  Company Number: US-BAYER-2011-085761

PATIENT
  Age: 67 Year
  Sex: Male

DRUGS (1)
  1. NEXAVAR [Suspect]
     Indication: RENAL CELL CARCINOMA
     Dosage: 400 MG, BID
     Route: 048
     Dates: start: 20110729, end: 20110823

REACTIONS (5)
  - HYPERSENSITIVITY [None]
  - RASH [None]
  - SKIN EXFOLIATION [None]
  - OEDEMA [None]
  - PRURITUS [None]
